FAERS Safety Report 6644259-9 (Version None)
Quarter: 2010Q1

REPORT INFORMATION
  Report Type: 
  Country: None (occurrence: None)
  Receive Date: 20100319
  Receipt Date: 20100319
  Transmission Date: 20100710
  Serious: Yes (Other)
  Sender: FDA-Public Use
  Company Number: None

PATIENT
  Age: 48 Year
  Sex: Female
  Weight: 56.6996 kg

DRUGS (1)
  1. ASTELIN [Suspect]
     Indication: MULTIPLE ALLERGIES
     Dosage: 30ML  2 SPRAYS IN EACH NOSTRIL TWICE DAILY
     Route: 045
     Dates: start: 20100104

REACTIONS (9)
  - BLISTER [None]
  - DECREASED APPETITE [None]
  - DYSGEUSIA [None]
  - NAUSEA [None]
  - PAIN [None]
  - PRODUCT TASTE ABNORMAL [None]
  - PRURITUS [None]
  - TONGUE BLISTERING [None]
  - URTICARIA [None]
